FAERS Safety Report 4512793-3 (Version None)
Quarter: 2004Q4

REPORT INFORMATION
  Report Type: 
  Country: None (occurrence: None)
  Receive Date: 20041119
  Receipt Date: 20041119
  Transmission Date: 20050328
  Serious: No
  Sender: FDA-Public Use
  Company Number: None

PATIENT
  Age: 17 Year
  Sex: Female

DRUGS (1)
  1. VISINE-A [Suspect]
     Dosage: EYE DROPS

REACTIONS (5)
  - HEADACHE [None]
  - IMPAIRED DRIVING ABILITY [None]
  - MYDRIASIS [None]
  - NEOPLASM [None]
  - PHOTOSENSITIVITY REACTION [None]
